FAERS Safety Report 19766346 (Version 1)
Quarter: 2021Q3

REPORT INFORMATION
  Report Type: Spontaneous
  Country: US (occurrence: US)
  Receive Date: 20210830
  Receipt Date: 20210830
  Transmission Date: 20211014
  Serious: No
  Sender: FDA-Public Use
  Company Number: None

PATIENT
  Age: 47 Year
  Sex: Male
  Weight: 119.75 kg

DRUGS (2)
  1. DOXYCYCLINE (DOXYCYCLINE MONOHYDRATE 100MG CAP) [Suspect]
     Active Substance: DOXYCYCLINE
     Indication: COUGH
     Route: 048
     Dates: start: 20210806, end: 20210811
  2. REGEN?COV [Suspect]
     Active Substance: CASIRIVIMAB\IMDEVIMAB
     Indication: COVID-19
     Route: 042
     Dates: start: 20210804, end: 20210804

REACTIONS (6)
  - Papule [None]
  - Rash pruritic [None]
  - Rash papular [None]
  - Dry skin [None]
  - Dysgeusia [None]
  - Productive cough [None]

NARRATIVE: CASE EVENT DATE: 20210812
